FAERS Safety Report 24019164 (Version 1)
Quarter: 2024Q2

REPORT INFORMATION
  Report Type: Spontaneous
  Country: US (occurrence: US)
  Receive Date: 20240627
  Receipt Date: 20240627
  Transmission Date: 20240716
  Serious: No
  Sender: FDA-Public Use
  Company Number: US-ROCHE-3550593

PATIENT
  Age: 16 Year
  Sex: Female
  Weight: 70.7 kg

DRUGS (7)
  1. ACTEMRA [Suspect]
     Active Substance: TOCILIZUMAB
     Indication: Juvenile idiopathic arthritis
     Dosage: STRENGHT 162MG/0.9ML
     Route: 058
     Dates: start: 2022
  2. ACTEMRA [Suspect]
     Active Substance: TOCILIZUMAB
     Indication: Juvenile idiopathic arthritis
     Route: 058
     Dates: start: 202311
  3. ACTEMRA [Suspect]
     Active Substance: TOCILIZUMAB
     Indication: Juvenile idiopathic arthritis
  4. SULFASALAZINE [Concomitant]
     Active Substance: SULFASALAZINE
     Indication: Juvenile idiopathic arthritis
     Dosage: 1000 MG AM?500 MG PM
     Route: 048
     Dates: start: 20221102
  5. MELOXICAM [Concomitant]
     Active Substance: MELOXICAM
     Indication: Juvenile idiopathic arthritis
     Route: 048
     Dates: start: 20210611
  6. BENADRYL [Concomitant]
     Active Substance: DIPHENHYDRAMINE HYDROCHLORIDE
  7. XYZAL [Concomitant]
     Active Substance: LEVOCETIRIZINE DIHYDROCHLORIDE

REACTIONS (8)
  - Needle issue [Unknown]
  - Accidental exposure to product [Unknown]
  - Rash erythematous [Recovered/Resolved]
  - Drug delivery system malfunction [Unknown]
  - Product quality issue [Unknown]
  - Device malfunction [Unknown]
  - Swelling [Recovered/Resolved]
  - Pruritus [Unknown]

NARRATIVE: CASE EVENT DATE: 20240406
